FAERS Safety Report 8679428 (Version 2)
Quarter: 2012Q4

REPORT INFORMATION
  Report Type: 
  Country: US (occurrence: US)
  Receive Date: 20120724
  Receipt Date: 20120914
  Transmission Date: 20130627
  Serious: Yes (Other)
  Sender: FDA-Public Use
  Company Number: US-JNJFOC-20120706746

PATIENT
  Age: 19 Year
  Sex: Male

DRUGS (4)
  1. RISPERIDONE [Suspect]
     Indication: SCHIZOPHRENIA
     Route: 065
     Dates: end: 201207
  2. RISPERIDONE [Suspect]
     Indication: SCHIZOPHRENIA
     Dosage: 2 mg at night and 3 mg in the morning
     Route: 065
     Dates: start: 20091210
  3. RISPERIDONE [Suspect]
     Indication: SCHIZOPHRENIA
     Route: 065
  4. SERTRALINE [Suspect]
     Indication: SCHIZOPHRENIA
     Route: 065

REACTIONS (4)
  - Extrapyramidal disorder [Recovered/Resolved]
  - Delusion [Recovered/Resolved]
  - Abnormal behaviour [Unknown]
  - Speech disorder [Recovered/Resolved]
